FAERS Safety Report 10961590 (Version 1)
Quarter: 2015Q1

REPORT INFORMATION
  Report Type: Spontaneous
  Country: US (occurrence: None)
  Receive Date: 20150326
  Receipt Date: 20150326
  Transmission Date: 20150721
  Serious: Yes (Disabling)
  Sender: FDA-Public Use
  Company Number: None

PATIENT
  Age: 74 Year
  Sex: Female
  Weight: 52.16 kg

DRUGS (5)
  1. NADOLOL. [Suspect]
     Active Substance: NADOLOL
     Indication: HYPERTENSION
     Dosage: 1/2 TAB QD
     Route: 048
     Dates: start: 20150209, end: 20150209
  2. HARVONI [Suspect]
     Active Substance: LEDIPASVIR\SOFOSBUVIR
     Indication: HEPATITIS C
     Dosage: 1 PILL
     Route: 048
  3. NADOLOL. [Suspect]
     Active Substance: NADOLOL
     Indication: VARICES OESOPHAGEAL
     Dosage: 1/2 TAB QD
     Route: 048
     Dates: start: 20150209, end: 20150209
  4. HYDROCHLORITHIAZIDE [Concomitant]
  5. EXCEDRIN TENSION PRN [Concomitant]

REACTIONS (2)
  - Dyspnoea [None]
  - Bradycardia [None]
